FAERS Safety Report 18427098 (Version 1)
Quarter: 2020Q4

REPORT INFORMATION
  Report Type: Spontaneous
  Country: US (occurrence: US)
  Receive Date: 20201026
  Receipt Date: 20201026
  Transmission Date: 20210114
  Serious: Yes (Hospitalization, Disabling)
  Sender: FDA-Public Use
  Company Number: None

PATIENT
  Age: 45 Year
  Sex: Female
  Weight: 89.1 kg

DRUGS (7)
  1. PROBIOTICS [Concomitant]
     Active Substance: PROBIOTICS NOS
  2. MULTIVITAMIN [Concomitant]
     Active Substance: VITAMINS
  3. TEGRETOL [Concomitant]
     Active Substance: CARBAMAZEPINE
  4. CYMBALTA [Concomitant]
     Active Substance: DULOXETINE HYDROCHLORIDE
  5. SPRAVATO [Suspect]
     Active Substance: ESKETAMINE
     Indication: BIPOLAR DISORDER
     Dosage: ?          OTHER FREQUENCY:TWICE A WEEK;?
     Route: 055
     Dates: start: 20200918, end: 20200928
  6. KLONOPIN [Concomitant]
     Active Substance: CLONAZEPAM
  7. GEODON [Concomitant]
     Active Substance: ZIPRASIDONE HYDROCHLORIDE\ZIPRASIDONE MESYLATE

REACTIONS (3)
  - Mania [None]
  - Bipolar I disorder [None]
  - Hypertension [None]

NARRATIVE: CASE EVENT DATE: 20200929
